FAERS Safety Report 19603609 (Version 1)
Quarter: 2021Q3

REPORT INFORMATION
  Report Type: Spontaneous
  Country: DE (occurrence: DE)
  Receive Date: 20210724
  Receipt Date: 20210724
  Transmission Date: 20211014
  Serious: Yes (Hospitalization, Other)
  Sender: FDA-Public Use
  Company Number: DE-ACCORD-232721

PATIENT
  Age: 81 Year
  Sex: Female
  Weight: 75 kg

DRUGS (10)
  1. METOPROLOL. [Concomitant]
     Active Substance: METOPROLOL
     Dosage: 95 MG, 0.5?0?0?0
  2. SERTRALINE [Suspect]
     Active Substance: SERTRALINE HYDROCHLORIDE
     Indication: PRODUCT USED FOR UNKNOWN INDICATION
     Dosage: 50 MG, 0?0?1?0
  3. EDOXABAN [Suspect]
     Active Substance: EDOXABAN TOSYLATE
     Indication: PRODUCT USED FOR UNKNOWN INDICATION
     Dosage: 30 MG, 1?0?0?0
  4. METAMIZOLE SODIUM [Concomitant]
     Active Substance: METAMIZOLE SODIUM
     Dosage: 20 ML, 1?1?1?1
  5. TORASEMIDE [Concomitant]
     Active Substance: TORSEMIDE
     Dosage: 10 MG, 1?0?0?0
  6. CITRIC ACID\POTASSIUM CITRATE [Concomitant]
     Active Substance: CITRIC ACID MONOHYDRATE\POTASSIUM CITRATE
     Dosage: 1 MG, 1?0?1?0
  7. XIPAMIDE [Concomitant]
     Active Substance: XIPAMIDE
     Dosage: 10 MG, 1?0?0?0
  8. PREGABALIN. [Concomitant]
     Active Substance: PREGABALIN
     Dosage: 25 MG, 1?0?1?0
  9. ROSUVASTATIN. [Concomitant]
     Active Substance: ROSUVASTATIN
     Dosage: 20 MG, 0?0?1?0
  10. SAXAGLIPTIN [Concomitant]
     Active Substance: SAXAGLIPTIN
     Dosage: 5 MG, 1?0?0?0

REACTIONS (4)
  - Anaemia [Unknown]
  - Constipation [Unknown]
  - General physical health deterioration [Unknown]
  - Haematochezia [Unknown]
